FAERS Safety Report 8711117 (Version 2)
Quarter: 2013Q1

REPORT INFORMATION
  Report Type: Spontaneous
  Country: JP (occurrence: None)
  Receive Date: 20120723
  Receipt Date: 20121228
  Transmission Date: 20140127
  Serious: Yes (Other)
  Sender: FDA-Public Use
  Company Number: EUS-2012-00479

PATIENT
  Age: 15 Year
  Sex: Female
  Weight: 45 kg

DRUGS (4)
  1. ASPARAGINASE [Suspect]
     Dosage: TOTAL ADMINISTERED
  2. METHOTREXATE [Concomitant]
  3. VINCRISTINE SULFATE [Concomitant]
  4. DEXAMETHASONE [Concomitant]

REACTIONS (2)
  - HYPERLIPIDAEMIA [None]
  - ACUTE LYMPHOCYTIC LEUKAEMIA RECURRENT [None]
